FAERS Safety Report 6735948-6 (Version None)
Quarter: 2010Q2

REPORT INFORMATION
  Report Type: 
  Country: None (occurrence: None)
  Receive Date: 20100521
  Receipt Date: 20100514
  Transmission Date: 20101027
  Serious: Yes (Death, Hospitalization)
  Sender: FDA-Public Use
  Company Number: B0652884A

PATIENT
  Sex: Male

DRUGS (6)
  1. ZOPHREN [Suspect]
     Dosage: 16MG SINGLE DOSE
     Route: 042
     Dates: start: 20100407, end: 20100407
  2. TAXOTERE [Suspect]
     Dosage: 150MG SINGLE DOSE
     Route: 042
     Dates: start: 20100407, end: 20100407
  3. FLUOROURACIL [Suspect]
     Dosage: 1500MG SINGLE DOSE
     Route: 042
     Dates: start: 20100407, end: 20100407
  4. CISPLATIN [Suspect]
     Dosage: 150MG SINGLE DOSE
     Route: 042
     Dates: start: 20100407, end: 20100407
  5. SOLU-MEDROL [Suspect]
     Dosage: 160MG SINGLE DOSE
     Route: 042
     Dates: start: 20100407, end: 20100407
  6. NEUPOGEN [Suspect]
     Route: 042
     Dates: start: 20100407, end: 20100407

REACTIONS (12)
  - ASCITES [None]
  - BACTERIAL SEPSIS [None]
  - BLOOD PRESSURE DECREASED [None]
  - COLITIS [None]
  - HYPERTHERMIA [None]
  - INTESTINAL INFARCTION [None]
  - LEUKOPENIA [None]
  - LOSS OF CONSCIOUSNESS [None]
  - PNEUMATOSIS INTESTINALIS [None]
  - PNEUMOPERITONEUM [None]
  - SEPTIC SHOCK [None]
  - TACHYCARDIA [None]
